FAERS Safety Report 16418035 (Version 2)
Quarter: 2019Q2

REPORT INFORMATION
  Report Type: Report from Study
  Country: BR (occurrence: BR)
  Receive Date: 20190611
  Receipt Date: 20190611
  Transmission Date: 20190711
  Serious: Yes (Other)
  Sender: FDA-Public Use
  Company Number: PHHY2019BR134295

PATIENT
  Sex: Female

DRUGS (2)
  1. TIMOLOL MALEATE. [Suspect]
     Active Substance: TIMOLOL MALEATE
     Indication: INTRAOCULAR PRESSURE INCREASED
     Dosage: 5 ML, UNK
     Route: 065
  2. TRAVATAN Z [Suspect]
     Active Substance: TRAVOPROST
     Indication: INTRAOCULAR PRESSURE INCREASED
     Dosage: 5 ML, QD IN THE EVENING
     Route: 065

REACTIONS (8)
  - Dementia Alzheimer^s type [Not Recovered/Not Resolved]
  - Glaucoma [Unknown]
  - Eye irritation [Not Recovered/Not Resolved]
  - Dry eye [Not Recovered/Not Resolved]
  - Memory impairment [Not Recovered/Not Resolved]
  - Nervousness [Not Recovered/Not Resolved]
  - Ocular hyperaemia [Not Recovered/Not Resolved]
  - Intraocular pressure increased [Recovered/Resolved]

NARRATIVE: CASE EVENT DATE: 2013
